FAERS Safety Report 24572951 (Version 1)
Quarter: 2024Q4

REPORT INFORMATION
  Report Type: Spontaneous
  Country: US (occurrence: US)
  Receive Date: 20241101
  Receipt Date: 20241101
  Transmission Date: 20250114
  Serious: Yes (Death, Life-Threatening, Hospitalization)
  Sender: AMGEN
  Company Number: US-AMGEN-USASP2024215299

PATIENT
  Age: 61 Year
  Sex: Female

DRUGS (3)
  1. PREDNISONE [Suspect]
     Active Substance: PREDNISONE
     Indication: Immunosuppressant drug therapy
     Dosage: 5 MILLIGRAM, QD
     Route: 065
  2. HYDROXYCHLOROQUINE [Concomitant]
     Active Substance: HYDROXYCHLOROQUINE
     Indication: Immunosuppressant drug therapy
     Dosage: 300 MILLIGRAM, QD
     Route: 065
  3. LEFLUNOMIDE [Concomitant]
     Active Substance: LEFLUNOMIDE
     Indication: Immunosuppressant drug therapy
     Dosage: 20 MILLIGRAM, QD
     Route: 065

REACTIONS (10)
  - Death [Fatal]
  - Hypoxia [Unknown]
  - Respiratory failure [Unknown]
  - Neutrophilic dermatosis [Unknown]
  - Varicella zoster pneumonia [Unknown]
  - Multiple organ dysfunction syndrome [Unknown]
  - Proteus test positive [Unknown]
  - Acute respiratory distress syndrome [Unknown]
  - Pulmonary alveolar haemorrhage [Unknown]
  - Shock [Unknown]
